FAERS Safety Report 7271637-X (Version None)
Quarter: 2011Q1

REPORT INFORMATION
  Report Type: 
  Country: None (occurrence: None)
  Receive Date: 20110203
  Receipt Date: 20110126
  Transmission Date: 20110831
  Serious: Yes (Hospitalization, Other)
  Sender: FDA-Public Use
  Company Number: US-US-EMD SERONO, INC.-7010304

PATIENT
  Sex: Female
  Weight: 59 kg

DRUGS (11)
  1. FOLIC ACID [Concomitant]
     Route: 048
  2. PREMPRO [Concomitant]
  3. BACLOFEN [Concomitant]
  4. REBIF [Suspect]
     Indication: MULTIPLE SCLEROSIS
     Route: 058
     Dates: start: 20040702
  5. ATENOLOL [Concomitant]
     Indication: PALPITATIONS
  6. ASPIRIN [Concomitant]
     Dates: start: 20100618
  7. MULTI-VITAMIN [Concomitant]
  8. OS-CAL 500 AND D [Concomitant]
     Route: 048
  9. AZOR [Concomitant]
  10. ASPIRIN [Concomitant]
     Indication: PALPITATIONS
     Dates: end: 20100617
  11. LYRICA [Concomitant]

REACTIONS (20)
  - DIVERTICULUM [None]
  - WHITE BLOOD CELL COUNT DECREASED [None]
  - ATRIAL FLUTTER [None]
  - WEIGHT INCREASED [None]
  - INJECTION SITE ERYTHEMA [None]
  - AORTIC VALVE INCOMPETENCE [None]
  - DIVERTICULITIS [None]
  - THYROXINE INCREASED [None]
  - MITRAL VALVE INCOMPETENCE [None]
  - HYDRONEPHROSIS [None]
  - BLOOD SODIUM DECREASED [None]
  - INJECTION SITE PAIN [None]
  - INJECTION SITE MASS [None]
  - ATRIAL FIBRILLATION [None]
  - SICK SINUS SYNDROME [None]
  - PULMONARY VALVE INCOMPETENCE [None]
  - TRICUSPID VALVE INCOMPETENCE [None]
  - RENAL ARTERY STENOSIS [None]
  - INFLUENZA LIKE ILLNESS [None]
  - RED BLOOD CELL COUNT DECREASED [None]
